FAERS Safety Report 24527437 (Version 1)
Quarter: 2024Q4

REPORT INFORMATION
  Report Type: Spontaneous
  Country: CA (occurrence: CA)
  Receive Date: 20241021
  Receipt Date: 20241021
  Transmission Date: 20250115
  Serious: Yes (Hospitalization)
  Sender: ROCHE
  Company Number: CA-ROCHE-10000102405

PATIENT
  Sex: Male

DRUGS (8)
  1. MYCOPHENOLATE MOFETIL [Suspect]
     Active Substance: MYCOPHENOLATE MOFETIL
     Indication: Immunosuppressant drug therapy
     Route: 065
  2. TOCILIZUMAB [Suspect]
     Active Substance: TOCILIZUMAB
     Indication: Still^s disease
     Route: 065
  3. ADALIMUMAB [Concomitant]
     Active Substance: ADALIMUMAB
  4. THYMOCYTE IMMUNE GLOBULIN NOS [Concomitant]
     Active Substance: THYMOCYTE IMMUNE GLOBULIN NOS
  5. BUSULFAN [Concomitant]
     Active Substance: BUSULFAN
  6. FLUDARABINE [Concomitant]
     Active Substance: FLUDARABINE PHOSPHATE
  7. METHYLPREDNISOLONE [Concomitant]
     Active Substance: METHYLPREDNISOLONE
  8. RITUXIMAB [Concomitant]
     Active Substance: RITUXIMAB

REACTIONS (13)
  - Arthropathy [Recovering/Resolving]
  - Cataract [Recovering/Resolving]
  - Cushingoid [Recovering/Resolving]
  - Drug ineffective [Recovering/Resolving]
  - Fracture [Recovering/Resolving]
  - Growth retardation [Recovering/Resolving]
  - Hepatic steatosis [Recovering/Resolving]
  - Hypertension [Recovering/Resolving]
  - Nephropathy toxic [Recovering/Resolving]
  - Osteopenia [Recovering/Resolving]
  - Renal disorder [Recovering/Resolving]
  - Short stature [Recovering/Resolving]
  - Spinal instability [Recovering/Resolving]
